FAERS Safety Report 16259940 (Version 1)
Quarter: 2019Q2

REPORT INFORMATION
  Report Type: Spontaneous
  Country: US (occurrence: US)
  Receive Date: 20190430
  Receipt Date: 20190430
  Transmission Date: 20190711
  Serious: No
  Sender: FDA-Public Use
  Company Number: None

PATIENT
  Age: 15 Month
  Sex: Male
  Weight: 8.55 kg

DRUGS (4)
  1. CLINDAMYCIN. [Concomitant]
     Active Substance: CLINDAMYCIN
     Dates: start: 20190203, end: 20190210
  2. CEFDINIR. [Suspect]
     Active Substance: CEFDINIR
     Indication: CELLULITIS
     Route: 048
     Dates: start: 20190203, end: 20190210
  3. CEFDINIR. [Concomitant]
     Active Substance: CEFDINIR
     Dates: start: 20190203, end: 20190210
  4. CLINDAMYCIN. [Suspect]
     Active Substance: CLINDAMYCIN
     Indication: CELLULITIS
     Route: 048
     Dates: start: 20190203, end: 20190210

REACTIONS (1)
  - Rash maculo-papular [None]

NARRATIVE: CASE EVENT DATE: 20190210
